FAERS Safety Report 25330587 (Version 1)
Quarter: 2025Q2

REPORT INFORMATION
  Report Type: Spontaneous
  Country: US (occurrence: US)
  Receive Date: 20250519
  Receipt Date: 20250519
  Transmission Date: 20250716
  Serious: No
  Sender: APOTEX
  Company Number: US-APOTEX-2025AP005030

PATIENT
  Sex: Female

DRUGS (1)
  1. IBANDRONATE SODIUM [Suspect]
     Active Substance: IBANDRONATE SODIUM
     Indication: Product used for unknown indication
     Route: 065
     Dates: start: 20250401

REACTIONS (3)
  - Musculoskeletal stiffness [Unknown]
  - Peripheral swelling [Recovering/Resolving]
  - Musculoskeletal pain [Unknown]

NARRATIVE: CASE EVENT DATE: 20250401
